FAERS Safety Report 7801806-9 (Version None)
Quarter: 2011Q4

REPORT INFORMATION
  Report Type: 
  Country: None (occurrence: None)
  Receive Date: 20111005
  Receipt Date: 20110926
  Transmission Date: 20120403
  Serious: Yes (Hospitalization)
  Sender: FDA-Public Use
  Company Number: AUR-APL-2011-05106

PATIENT
  Age: 10 Month
  Sex: Male

DRUGS (2)
  1. CETIRIZINE HCL [Suspect]
     Indication: DIFFUSE CUTANEOUS MASTOCYTOSIS
  2. KETOTIFEN (KETOTIFEN) [Suspect]
     Indication: DIFFUSE CUTANEOUS MASTOCYTOSIS

REACTIONS (4)
  - DIARRHOEA [None]
  - OEDEMA PERIPHERAL [None]
  - FLUSHING [None]
  - BLISTER [None]
